FAERS Safety Report 23598250 (Version 1)
Quarter: 2024Q1

REPORT INFORMATION
  Report Type: Spontaneous
  Country: CA (occurrence: CA)
  Receive Date: 20240305
  Receipt Date: 20240305
  Transmission Date: 20240410
  Serious: Yes (Life-Threatening, Hospitalization, Other)
  Sender: FDA-Public Use
  Company Number: CA-009507513-2102CAN007850

PATIENT
  Age: 82 Year
  Sex: Male
  Weight: 99 kg

DRUGS (2)
  1. CUBICIN RF [Suspect]
     Active Substance: DAPTOMYCIN
     Indication: Osteomyelitis
     Dosage: DOSAGE FORM: POWDER FOR SOLUTION INTRAVENOUS; 600 MILLIGRAM, 1 EVERY 24 HOURS
     Route: 041
     Dates: start: 20200611, end: 20200711
  2. CUBICIN RF [Suspect]
     Active Substance: DAPTOMYCIN
     Indication: Diabetic foot infection

REACTIONS (1)
  - Eosinophilic pneumonia [Unknown]

NARRATIVE: CASE EVENT DATE: 20200630
